FAERS Safety Report 16324040 (Version 2)
Quarter: 2019Q2

REPORT INFORMATION
  Report Type: Spontaneous
  Country: US (occurrence: US)
  Receive Date: 20190517
  Receipt Date: 20190620
  Transmission Date: 20190711
  Serious: Yes (Other)
  Sender: FDA-Public Use
  Company Number: US-ROCHE-2317688

PATIENT
  Sex: Female
  Weight: 64.01 kg

DRUGS (4)
  1. ACTEMRA [Suspect]
     Active Substance: TOCILIZUMAB
     Indication: TEMPORAL ARTERITIS
     Dosage: FIRST INFUSION WAS 273 MG, HER 2ND INFUSION WAS 269 MG, HER 3RD INFUSION WAS 278 MG, HER 4TH INFUSIO
     Route: 042
     Dates: start: 20180806, end: 20190111
  2. PREDNISONE. [Concomitant]
     Active Substance: PREDNISONE
     Indication: TEMPORAL ARTERITIS
     Route: 065
     Dates: start: 20190508
  3. ACTEMRA [Suspect]
     Active Substance: TOCILIZUMAB
     Indication: OFF LABEL USE
     Dosage: FIRST INFUSION WAS 273 MG, HER 2ND INFUSION WAS 269 MG, HER 3RD INFUSION WAS 278 MG, HER 4TH INFUSIO
     Route: 042
     Dates: start: 20180816
  4. PREDNISONE. [Concomitant]
     Active Substance: PREDNISONE
     Indication: OFF LABEL USE

REACTIONS (14)
  - Visual impairment [Unknown]
  - Intentional product use issue [Unknown]
  - Pain [Unknown]
  - Feeling abnormal [Unknown]
  - Headache [Unknown]
  - Back pain [Unknown]
  - Dizziness [Unknown]
  - Hypoacusis [Unknown]
  - Off label use [Unknown]
  - Vision blurred [Unknown]
  - Abdominal pain upper [Unknown]
  - Temporal arteritis [Unknown]
  - Weight fluctuation [Unknown]
  - Fatigue [Unknown]
